FAERS Safety Report 8228335-5 (Version None)
Quarter: 2012Q1

REPORT INFORMATION
  Report Type: 
  Country: None (occurrence: None)
  Receive Date: 20120322
  Receipt Date: 20110927
  Transmission Date: 20120608
  Serious: No
  Sender: FDA-Public Use
  Company Number: US-BRISTOL-MYERS SQUIBB COMPANY-16100166

PATIENT
  Age: 53 Year
  Sex: Female

DRUGS (3)
  1. PLATINUM [Concomitant]
  2. ERBITUX [Suspect]
     Dosage: INFUSION INTERRUPTED ON 26SEP11
  3. FLUOROURACIL [Concomitant]

REACTIONS (2)
  - BLOOD SODIUM DECREASED [None]
  - BLOOD GLUCOSE INCREASED [None]
